FAERS Safety Report 17137663 (Version 1)
Quarter: 2019Q4

REPORT INFORMATION
  Report Type: Report from Study
  Country: IT (occurrence: IT)
  Receive Date: 20191211
  Receipt Date: 20191211
  Transmission Date: 20200122
  Serious: Yes (Hospitalization)
  Sender: FDA-Public Use
  Company Number: IT-TEVA-2019-IT-1148635

PATIENT
  Age: 76 Year
  Sex: Male

DRUGS (8)
  1. CAPTOPRIL. [Suspect]
     Active Substance: CAPTOPRIL
     Indication: ESSENTIAL HYPERTENSION
     Dosage: 25 MG 1 DAYS
     Route: 048
     Dates: start: 20191010, end: 20191011
  2. MADOPAR 100 MG + 25 MG CAPSULE RIGIDE A RILASCIO PROLUNGATO [Concomitant]
  3. ZANEDIP 10 MG COMPRESSE RIVESTITE CON FILM [Suspect]
     Active Substance: LERCANIDIPINE HYDROCHLORIDE
     Indication: ESSENTIAL HYPERTENSION
     Dosage: 10 MG 1 DAYS
     Route: 048
     Dates: start: 20191010, end: 20191011
  4. ZYLORIC 100 MG COMPRESSE [Concomitant]
  5. ELIQUIS [Concomitant]
     Active Substance: APIXABAN
  6. DEDRALEN 2 MG COMPRESSE [Concomitant]
     Active Substance: DOXAZOSIN MESYLATE
  7. TOTALIP 10 MG COMPRESSE RIVESTITE CON FILM [Concomitant]
  8. VASORETIC 20 MG + 12,5 MG COMPRESSE [Concomitant]
     Active Substance: ENALAPRIL MALEATE\HYDROCHLOROTHIAZIDE

REACTIONS (5)
  - Syncope [Recovering/Resolving]
  - Malaise [Recovering/Resolving]
  - Hypotension [Recovering/Resolving]
  - Presyncope [Recovering/Resolving]
  - Vertigo [Recovering/Resolving]

NARRATIVE: CASE EVENT DATE: 20191011
